FAERS Safety Report 18619524 (Version 14)
Quarter: 2021Q2

REPORT INFORMATION
  Report Type: Spontaneous
  Country: BR (occurrence: BR)
  Receive Date: 20201215
  Receipt Date: 20210624
  Transmission Date: 20210717
  Serious: Yes (Hospitalization, Other)
  Sender: FDA-Public Use
  Company Number: BR-IPSEN BIOPHARMACEUTICALS, INC.-2018-14075

PATIENT
  Age: 65 Year
  Sex: Female

DRUGS (12)
  1. RIVAROXABAN [Suspect]
     Active Substance: RIVAROXABAN
     Indication: PRODUCT USED FOR UNKNOWN INDICATION
     Dosage: 1 TABLET/ DAY.
     Dates: start: 20210517
  2. COVID?19 VACCINE NOS. [Suspect]
     Active Substance: COVID-19 VACCINE NOS
     Indication: COVID-19 IMMUNISATION
     Dosage: IST DOSE
     Route: 065
     Dates: start: 20210410
  3. VITAMIN D [Concomitant]
     Active Substance: VITAMIN D NOS
     Indication: HYPOVITAMINOSIS
     Dosage: FOR 11 YEARS (1 TABLET/WEEK)
     Route: 048
  4. XARELTO [Suspect]
     Active Substance: RIVAROXABAN
     Indication: PRODUCT USED FOR UNKNOWN INDICATION
     Dosage: ONE TABLET PER DAY
     Dates: start: 20210517
  5. LOSARTAN POTASSIUM. [Concomitant]
     Active Substance: LOSARTAN POTASSIUM
     Indication: HYPERTENSION
     Dosage: 2 TABLETS PER DAY FOR ELEVEN YEARS
     Route: 048
  6. DOSTINEX [Concomitant]
     Active Substance: CABERGOLINE
     Indication: BLOOD GROWTH HORMONE
     Dosage: 2 TABLETS PER WEEK FOR 11 YEARS
     Route: 048
  7. DICLOFENAC [Suspect]
     Active Substance: DICLOFENAC
     Indication: HEADACHE
     Dosage: 1 CP
     Route: 065
  8. ALGINAC [Suspect]
     Active Substance: CYANOCOBALAMIN\DICLOFENAC SODIUM\PYRIDOXINE HYDROCHLORIDE\THIAMINE MONONITRATE
     Indication: BACK PAIN
     Dates: start: 20201206, end: 20201207
  9. CARBAMAZEPINE. [Concomitant]
     Active Substance: CARBAMAZEPINE
     Indication: SEIZURE
     Dosage: 2 TABLETS PER DAY FOR ELEVEN YEARS
     Route: 048
  10. VELIJA [Concomitant]
     Active Substance: DULOXETINE HYDROCHLORIDE
     Indication: DEPRESSION
     Dosage: 2 TABLETS PER DAY FOR ELEVEN YEARS
     Route: 048
  11. GLIFAGE [Concomitant]
     Active Substance: METFORMIN HYDROCHLORIDE
     Indication: GLUCOSE TOLERANCE IMPAIRED
     Dosage: 2 TABLETS PER DAY FOR ELEVEN YEARS
     Route: 048
  12. SOMATULINE AUTOGEL [Suspect]
     Active Substance: LANREOTIDE ACETATE
     Indication: ACROMEGALY
     Dosage: BUTTOCKS (RIGHT SIDE)
     Route: 058
     Dates: start: 2016

REACTIONS (41)
  - Arthralgia [Recovered/Resolved]
  - Injection site pain [Recovered/Resolved]
  - Finger deformity [Unknown]
  - Intervertebral disc protrusion [Recovering/Resolving]
  - Hyperhidrosis [Recovered/Resolved]
  - Nephrolithiasis [Recovered/Resolved]
  - Complication associated with device [Recovering/Resolving]
  - Blood pressure fluctuation [Unknown]
  - Abdominal pain [Recovered/Resolved]
  - Procedural pain [Recovered/Resolved]
  - Deafness unilateral [Recovered/Resolved]
  - Tendonitis [Recovered/Resolved]
  - Vomiting [Recovered/Resolved]
  - Dizziness [Recovered/Resolved]
  - Syncope [Recovered/Resolved]
  - Blood glucose increased [Recovering/Resolving]
  - Injection site nodule [Recovered/Resolved]
  - Nausea [Recovered/Resolved]
  - Post procedural haemorrhage [Recovered/Resolved]
  - Injection site extravasation [Recovered/Resolved]
  - Swelling [Recovered/Resolved]
  - Headache [Recovered/Resolved]
  - Dizziness [Recovered/Resolved]
  - Fatigue [Recovered/Resolved]
  - Bone erosion [Not Recovered/Not Resolved]
  - Pain [Recovered/Resolved]
  - Back pain [Recovered/Resolved]
  - Blood growth hormone increased [Recovered/Resolved]
  - Somnolence [Recovered/Resolved]
  - Hypotension [Recovered/Resolved]
  - Back pain [Recovered/Resolved]
  - Procedural headache [Unknown]
  - Dysentery [Recovered/Resolved]
  - Peripheral swelling [Recovered/Resolved]
  - Blood growth hormone abnormal [Unknown]
  - Diarrhoea [Recovered/Resolved]
  - Bone hypertrophy [Recovered/Resolved]
  - Stress [Unknown]
  - Polyuria [Recovered/Resolved]
  - Heart rate increased [Recovered/Resolved]
  - Product dose omission issue [Unknown]

NARRATIVE: CASE EVENT DATE: 2016
